FAERS Safety Report 6255613-1 (Version None)
Quarter: 2009Q3

REPORT INFORMATION
  Report Type: 
  Country: None (occurrence: None)
  Receive Date: 20090701
  Receipt Date: 20090622
  Transmission Date: 20100115
  Serious: Yes (Hospitalization)
  Sender: FDA-Public Use
  Company Number: 236938K09USA

PATIENT
  Age: 52 Year
  Sex: Female

DRUGS (4)
  1. REBIF [Suspect]
     Indication: MULTIPLE SCLEROSIS
     Dosage: 44 MCG, 3 IN 1 WEEKS, SUBCUTANEOUS
     Route: 058
     Dates: start: 20090424
  2. SEIZURE MEDICTION (ANTIEPLIPTICS) [Concomitant]
  3. PREVACID (ALNSOPRAZOLE) [Concomitant]
  4. EFFEXOR [Concomitant]

REACTIONS (2)
  - DEPRESSION [None]
  - INTERVERTEBRAL DISC COMPRESSION [None]
